FAERS Safety Report 6162532-8 (Version None)
Quarter: 2009Q2

REPORT INFORMATION
  Report Type: 
  Country: None (occurrence: None)
  Receive Date: 20090421
  Receipt Date: 20090409
  Transmission Date: 20091009
  Serious: Yes (Hospitalization, Other)
  Sender: FDA-Public Use
  Company Number: US-PFIZER INC-2009196768

PATIENT
  Sex: Female
  Weight: 79.819 kg

DRUGS (2)
  1. XALATAN [Suspect]
     Indication: GLAUCOMA
     Dosage: UNK
     Route: 047
  2. ALL OTHER THERAPEUTIC PRODUCTS [Concomitant]
     Dosage: UNK

REACTIONS (3)
  - AORTIC VALVE REPLACEMENT [None]
  - CARDIAC DISORDER [None]
  - VASCULAR GRAFT [None]
